FAERS Safety Report 10246555 (Version 1)
Quarter: 2014Q2

REPORT INFORMATION
  Report Type: Spontaneous
  Country: NL (occurrence: NL)
  Receive Date: 20140619
  Receipt Date: 20140619
  Transmission Date: 20141212
  Serious: Yes (Other)
  Sender: FDA-Public Use
  Company Number: NL-ASTRAZENECA-2014SE40965

PATIENT
  Age: 54 Year
  Sex: Female

DRUGS (1)
  1. METOPROLOL SUCCINATE [Suspect]
     Indication: HYPERTENSION
     Route: 048
     Dates: start: 20140507

REACTIONS (2)
  - Suicidal ideation [Recovering/Resolving]
  - Depression [Recovering/Resolving]
